FAERS Safety Report 17677637 (Version 1)
Quarter: 2020Q2

REPORT INFORMATION
  Report Type: Spontaneous
  Country: US (occurrence: US)
  Receive Date: 20200416
  Receipt Date: 20200416
  Transmission Date: 20200714
  Serious: Yes (Hospitalization)
  Sender: FDA-Public Use
  Company Number: US-JNJFOC-20200413011

PATIENT
  Age: 63 Year
  Sex: Female
  Weight: 99.2 kg

DRUGS (1)
  1. INVOKANA [Suspect]
     Active Substance: CANAGLIFLOZIN
     Indication: DIABETES MELLITUS
     Route: 048
     Dates: start: 20141111

REACTIONS (3)
  - Osteomyelitis [Unknown]
  - Toe amputation [Unknown]
  - Diabetic foot [Unknown]

NARRATIVE: CASE EVENT DATE: 201604
